FAERS Safety Report 7902638 (Version 9)
Quarter: 2013Q2

REPORT INFORMATION
  Report Type: Spontaneous
  Country: US (occurrence: US)
  Receive Date: 20110418
  Receipt Date: 20130605
  Transmission Date: 20140414
  Serious: Yes (Hospitalization, Other)
  Sender: FDA-Public Use
  Company Number: US-ROCHE-746046

PATIENT
  Age: 44 Year
  Sex: Female
  Weight: 64.9 kg

DRUGS (5)
  1. ACCUTANE [Suspect]
     Indication: ACNE CYSTIC
     Route: 065
     Dates: start: 199411, end: 199502
  2. ACCUTANE [Suspect]
     Route: 065
     Dates: start: 199603, end: 199608
  3. ACCUTANE [Suspect]
     Route: 065
     Dates: start: 199801, end: 199803
  4. ACCUTANE [Suspect]
     Route: 065
     Dates: start: 200403, end: 200407
  5. ACCUTANE [Suspect]
     Route: 065
     Dates: start: 200410, end: 200501

REACTIONS (15)
  - Colitis ulcerative [Unknown]
  - Anal fistula [Unknown]
  - Proctitis [Unknown]
  - Inflammatory bowel disease [Unknown]
  - Emotional disorder [Unknown]
  - Anxiety [Unknown]
  - Crohn^s disease [Unknown]
  - Ileal fistula [Unknown]
  - Anal abscess [Unknown]
  - Deep vein thrombosis [Unknown]
  - Anxiety [Unknown]
  - Hepatitis acute [Unknown]
  - Irritable bowel syndrome [Unknown]
  - Rash [Unknown]
  - Acute febrile neutrophilic dermatosis [Unknown]
